FAERS Safety Report 12524986 (Version 1)
Quarter: 2016Q3

REPORT INFORMATION
  Report Type: Report from Study
  Country: US (occurrence: US)
  Receive Date: 20160704
  Receipt Date: 20160704
  Transmission Date: 20161109
  Serious: Yes (Other)
  Sender: FDA-Public Use
  Company Number: US-ABBVIE-16K-163-1662711-00

PATIENT
  Age: 62 Year
  Sex: Female

DRUGS (2)
  1. HUMIRA [Suspect]
     Active Substance: ADALIMUMAB
     Indication: RHEUMATOID ARTHRITIS
     Route: 058
     Dates: start: 201501, end: 201507
  2. HUMIRA [Suspect]
     Active Substance: ADALIMUMAB
     Route: 058
     Dates: start: 201605

REACTIONS (10)
  - Injection site bruising [Unknown]
  - Nervousness [Unknown]
  - Injection site pain [Unknown]
  - Nipple exudate bloody [Recovered/Resolved]
  - Injection site erythema [Unknown]
  - Mammary duct ectasia [Recovered/Resolved]
  - Injection site haemorrhage [Unknown]
  - Injection site pruritus [Unknown]
  - Inappropriate schedule of drug administration [Recovered/Resolved]
  - Injection site swelling [Unknown]

NARRATIVE: CASE EVENT DATE: 201501
